FAERS Safety Report 25997118 (Version 1)
Quarter: 2025Q4

REPORT INFORMATION
  Report Type: Spontaneous
  Country: US (occurrence: US)
  Receive Date: 20251104
  Receipt Date: 20251104
  Transmission Date: 20260117
  Serious: Yes (Death, Hospitalization)
  Sender: BAYER HEALTHCARE PHARMACEUTICALS INC.
  Company Number: US-BAYER-2025A142566

PATIENT
  Age: 75 Year
  Sex: Male

DRUGS (1)
  1. NUBEQA [Suspect]
     Active Substance: DAROLUTAMIDE
     Dosage: UNK
     Dates: start: 202407, end: 202507

REACTIONS (6)
  - Death [Fatal]
  - Hospitalisation [None]
  - Liver disorder [None]
  - Renal disorder [None]
  - Lung disorder [None]
  - Illness [None]

NARRATIVE: CASE EVENT DATE: 20250701
